FAERS Safety Report 17850227 (Version 1)
Quarter: 2020Q2

REPORT INFORMATION
  Report Type: Spontaneous
  Country: US (occurrence: US)
  Receive Date: 20200602
  Receipt Date: 20200602
  Transmission Date: 20200714
  Serious: Yes (Other)
  Sender: FDA-Public Use
  Company Number: US-PFIZER INC-2020177846

PATIENT
  Age: 80 Year
  Sex: Female
  Weight: 87.09 kg

DRUGS (1)
  1. FLECTOR [Suspect]
     Active Substance: DICLOFENAC EPOLAMINE
     Indication: PAIN
     Dosage: 0.5 DF, AS NEEDED (1/2 PATCH, APPLIES TO SKIN SUCH AS TO BACK, NECK, ABOVE KNEES, ABOVE WAIST)
     Route: 062

REACTIONS (6)
  - Intentional product misuse [Unknown]
  - Lower limb fracture [Unknown]
  - Back disorder [Unknown]
  - Pain [Unknown]
  - Fall [Unknown]
  - Intervertebral disc disorder [Unknown]
